FAERS Safety Report 5895761-9 (Version None)
Quarter: 2008Q3

REPORT INFORMATION
  Report Type: 
  Country: None (occurrence: None)
  Receive Date: 20080924
  Receipt Date: 20080919
  Transmission Date: 20090109
  Serious: Yes (Hospitalization)
  Sender: FDA-Public Use
  Company Number: IE-BRISTOL-MYERS SQUIBB COMPANY-14344022

PATIENT
  Age: 59 Year
  Sex: Female

DRUGS (1)
  1. CISPLATIN [Suspect]
     Indication: BREAST CANCER METASTATIC
     Route: 041
     Dates: start: 20080904

REACTIONS (1)
  - DEEP VEIN THROMBOSIS [None]
